FAERS Safety Report 23982832 (Version 5)
Quarter: 2024Q3

REPORT INFORMATION
  Report Type: Report from Study
  Country: IL (occurrence: IL)
  Receive Date: 20240617
  Receipt Date: 20240816
  Transmission Date: 20241016
  Serious: Yes (Death, Hospitalization, Other)
  Sender: NOVARTIS
  Company Number: IL-002147023-NVSC2024IL124438

PATIENT
  Age: 88 Year
  Sex: Female

DRUGS (2)
  1. COSENTYX [Suspect]
     Active Substance: SECUKINUMAB
     Indication: Product used for unknown indication
     Dosage: 150MG X 2 PENS
     Route: 058
     Dates: start: 202310
  2. COSENTYX [Suspect]
     Active Substance: SECUKINUMAB
     Dosage: UNK
     Route: 065
     Dates: start: 20240202

REACTIONS (6)
  - Urosepsis [Fatal]
  - Escherichia bacteraemia [Fatal]
  - Urinary tract infection [Fatal]
  - Renal impairment [Unknown]
  - Cardiac failure [Unknown]
  - Dyspnoea [Unknown]
